FAERS Safety Report 6539360-4 (Version None)
Quarter: 2010Q1

REPORT INFORMATION
  Report Type: 
  Country: None (occurrence: None)
  Receive Date: 20100115
  Receipt Date: 20100105
  Transmission Date: 20100710
  Serious: No
  Sender: FDA-Public Use
  Company Number: ES-JNJFOC-20100103086

PATIENT
  Sex: Female
  Weight: 80 kg

DRUGS (7)
  1. DURAGESIC-100 [Suspect]
     Indication: BACK PAIN
     Route: 062
  2. ENANTYUM [Concomitant]
     Indication: PAIN
     Route: 048
  3. ZALDIAR [Concomitant]
     Indication: PAIN
     Route: 048
  4. LYRICA [Concomitant]
     Indication: PAIN
     Route: 048
  5. DEPRAX [Concomitant]
     Indication: DEPRESSION
     Route: 048
  6. SEROXAT [Concomitant]
     Indication: DEPRESSION
     Route: 048
  7. ORFIDAL [Concomitant]
     Indication: DEPRESSION
     Route: 048

REACTIONS (7)
  - ANXIETY [None]
  - DIARRHOEA [None]
  - INAPPROPRIATE SCHEDULE OF DRUG ADMINISTRATION [None]
  - MALAISE [None]
  - NAUSEA [None]
  - VOMITING [None]
  - WRONG TECHNIQUE IN DRUG USAGE PROCESS [None]
